FAERS Safety Report 18709885 (Version 1)
Quarter: 2021Q1

REPORT INFORMATION
  Report Type: Spontaneous
  Country: US (occurrence: US)
  Receive Date: 20210107
  Receipt Date: 20210107
  Transmission Date: 20210419
  Serious: No
  Sender: FDA-Public Use
  Company Number: US-B.I. PHARMACEUTICALS,INC./RIDGEFIELD-2021-BI-074508

PATIENT
  Age: 69 Year
  Sex: Male

DRUGS (4)
  1. TRULICITY [Concomitant]
     Active Substance: DULAGLUTIDE
     Indication: PRODUCT USED FOR UNKNOWN INDICATION
     Dosage: 0.75 MG SUBCUTANEOUSLY ONCE WEEKLY
     Route: 058
     Dates: end: 202011
  2. TRULICITY [Concomitant]
     Active Substance: DULAGLUTIDE
     Dosage: 1.5 MG SUBCUTANEOUSLY ONCE WEEKLY
     Route: 058
     Dates: start: 202011
  3. METFORMIN [Concomitant]
     Active Substance: METFORMIN HYDROCHLORIDE
     Indication: PRODUCT USED FOR UNKNOWN INDICATION
     Route: 065
  4. JARDIANCE [Suspect]
     Active Substance: EMPAGLIFLOZIN
     Indication: TYPE 2 DIABETES MELLITUS
     Dosage: 10MG PO ONCE A DAY
     Route: 048
     Dates: start: 202012

REACTIONS (1)
  - Drug ineffective [Not Recovered/Not Resolved]
